FAERS Safety Report 8362557-8 (Version None)
Quarter: 2012Q2

REPORT INFORMATION
  Report Type: 
  Country: None (occurrence: None)
  Receive Date: 20120514
  Receipt Date: 20120430
  Transmission Date: 20120825
  Serious: Yes (Other)
  Sender: FDA-Public Use
  Company Number: WAES 1205USA00026

PATIENT
  Age: 16 Year
  Sex: Female

DRUGS (10)
  1. ONDANSETRON [Suspect]
     Indication: PROPHYLAXIS
     Dosage: 8 MG/BID/PO
     Route: 048
     Dates: start: 20120417, end: 20120420
  2. DIHYDROCODEINE BITARTRATE INJ [Concomitant]
  3. EMEND [Suspect]
     Indication: PROPHYLAXIS
     Dosage: 125 MG/1X/PO, 80 MG/1X/PO
     Route: 048
     Dates: start: 20120417, end: 20120417
  4. EMEND [Suspect]
     Indication: PROPHYLAXIS
     Dosage: 125 MG/1X/PO, 80 MG/1X/PO
     Route: 048
     Dates: start: 20120419, end: 20120419
  5. ONDANSETRON HYDROCHLORIDE [Concomitant]
  6. CISPLATIN [Suspect]
     Indication: BONE SARCOMA
     Dosage: 63 MG/DAILY/IV
     Route: 042
     Dates: start: 20120417, end: 20120420
  7. DEXAMETHASONE [Suspect]
     Indication: PROPHYLAXIS
     Dosage: IV, 5 ML/TID/ IV
     Route: 042
     Dates: start: 20120417, end: 20120417
  8. DEXAMETHASONE [Suspect]
     Indication: PROPHYLAXIS
     Dosage: IV, 5 ML/TID/ IV
     Route: 042
     Dates: start: 20120418, end: 20120420
  9. DOXORUBICIN HCL [Suspect]
     Indication: BONE SARCOMA
     Dosage: 59 MG/DAILY/IV
     Route: 042
     Dates: start: 20120417, end: 20120419
  10. ACETAMINOPHEN [Concomitant]

REACTIONS (2)
  - ELECTROCARDIOGRAM T WAVE INVERSION [None]
  - SINUS ARRHYTHMIA [None]
